FAERS Safety Report 5638853-1 (Version None)
Quarter: 2008Q1

REPORT INFORMATION
  Report Type: 
  Country: None (occurrence: None)
  Receive Date: 20080226
  Receipt Date: 20080215
  Transmission Date: 20080703
  Serious: Yes (Hospitalization)
  Sender: FDA-Public Use
  Company Number: US-MERCK-0705USA02849

PATIENT
  Age: 69 Year
  Sex: Female

DRUGS (1)
  1. FOSAMAX [Suspect]
     Indication: OSTEOPENIA
     Route: 048
     Dates: start: 19980301, end: 20060701

REACTIONS (7)
  - BLADDER PROLAPSE [None]
  - OEDEMA MOUTH [None]
  - ORAL PAIN [None]
  - PAIN IN JAW [None]
  - TOOTH LOSS [None]
  - UTERINE PROLAPSE [None]
  - VTH NERVE INJURY [None]
